FAERS Safety Report 6890781-X (Version None)
Quarter: 2010Q3

REPORT INFORMATION
  Report Type: 
  Country: None (occurrence: None)
  Receive Date: 20100731
  Receipt Date: 20090319
  Transmission Date: 20110219
  Serious: No
  Sender: FDA-Public Use
  Company Number: US-PFIZER INC-2009163076

PATIENT
  Sex: Female
  Weight: 136.5 kg

DRUGS (3)
  1. LIPITOR [Suspect]
     Indication: BLOOD CHOLESTEROL INCREASED
     Dosage: 10 MG, 1X/DAY
     Route: 048
     Dates: start: 20070701
  2. AVALIDE [Concomitant]
     Indication: HYPERTENSION
     Dosage: UNK
  3. VITAMINS [Concomitant]
     Dosage: UNK

REACTIONS (3)
  - BLOOD TRIGLYCERIDES INCREASED [None]
  - LICHEN PLANUS [None]
  - PSORIASIS [None]
